FAERS Safety Report 10475705 (Version 10)
Quarter: 2015Q1

REPORT INFORMATION
  Report Type: Report from Study
  Country: US (occurrence: US)
  Receive Date: 20140925
  Receipt Date: 20150114
  Transmission Date: 20150720
  Serious: Yes (Death, Life-Threatening, Hospitalization, Disabling)
  Sender: FDA-Public Use
  Company Number: US-ALEXION-A201403597

PATIENT
  Age: 67 Year
  Sex: Female
  Weight: 72.5 kg

DRUGS (134)
  1. THYMOGLOBULIN [Concomitant]
     Active Substance: LAPINE T-LYMPHOCYTE IMMUNE GLOBULIN
     Dosage: 1.5 MG/KG, SINGLE
     Route: 042
     Dates: start: 20140912, end: 20140912
  2. HYDRALAZINE [Concomitant]
     Active Substance: HYDRALAZINE HYDROCHLORIDE
     Dosage: 15 MG, SINGLE
     Route: 042
     Dates: start: 20140914, end: 20140914
  3. VALGANCICLOVIR [Concomitant]
     Active Substance: VALGANCICLOVIR
     Dosage: 450 MG, TWICE QW
     Route: 050
     Dates: start: 20140918
  4. INSULIN REGULAR                    /01223201/ [Concomitant]
     Dosage: 10 UT, SINGLE
     Route: 042
     Dates: start: 20140913, end: 20140913
  5. IPRATROPIUM [Concomitant]
     Active Substance: IPRATROPIUM
     Indication: DYSPNOEA
     Dosage: 0.5 MG, Q4H
     Route: 065
     Dates: start: 20140913, end: 20140927
  6. DIPHENHYDRAMINE [Concomitant]
     Active Substance: DIPHENHYDRAMINE
     Indication: PRODUCT USED FOR UNKNOWN INDICATION
     Dosage: 60 MG, SINGLE
     Route: 042
     Dates: start: 20140912, end: 20140912
  7. DULCOLAX (BISACODYL) [Concomitant]
     Active Substance: BISACODYL
     Indication: PRODUCT USED FOR UNKNOWN INDICATION
     Dosage: 10 MG, SINGLE
     Route: 054
     Dates: start: 20140918, end: 20140918
  8. GELFOAM [Concomitant]
     Active Substance: GELATIN\THROMBIN HUMAN
     Indication: PRODUCT USED FOR UNKNOWN INDICATION
     Dosage: UNK, PRN
     Route: 065
     Dates: start: 20140912, end: 20140912
  9. LANTUS [Concomitant]
     Active Substance: INSULIN GLARGINE
     Indication: PRODUCT USED FOR UNKNOWN INDICATION
     Dosage: 20 UT, QD
     Route: 058
     Dates: start: 20140913, end: 20140913
  10. KEPPRA [Concomitant]
     Active Substance: LEVETIRACETAM
     Dosage: 2000 MG, Q12H
     Route: 042
     Dates: start: 20140918, end: 20140918
  11. SODIUM BICARBONATE. [Concomitant]
     Active Substance: SODIUM BICARBONATE
     Indication: PRODUCT USED FOR UNKNOWN INDICATION
     Dosage: 50 MEQ, SINGLE
     Route: 042
     Dates: start: 20140913, end: 20140913
  12. VALCYTE [Concomitant]
     Active Substance: VALGANCICLOVIR HYDROCHLORIDE
     Dosage: 450 MG, QOD
     Route: 048
     Dates: start: 20140913, end: 20140915
  13. VALCYTE [Concomitant]
     Active Substance: VALGANCICLOVIR HYDROCHLORIDE
     Dosage: 450 MG, QD
     Route: 050
     Dates: start: 20140918, end: 20140927
  14. ISOPTIN [Concomitant]
     Active Substance: VERAPAMIL HYDROCHLORIDE
     Indication: PRODUCT USED FOR UNKNOWN INDICATION
     Dosage: UNK, PRN
     Route: 030
     Dates: start: 20140912, end: 20140912
  15. SEVELAMER CARBONATE. [Concomitant]
     Active Substance: SEVELAMER CARBONATE
     Indication: PRODUCT USED FOR UNKNOWN INDICATION
     Dosage: 2400 MG, TID
     Route: 048
  16. HEPARIN [Concomitant]
     Active Substance: HEPARIN SODIUM
     Dosage: 5000 UT, Q8H
     Route: 058
     Dates: start: 20140913, end: 20140919
  17. HYDRALAZINE [Concomitant]
     Active Substance: HYDRALAZINE HYDROCHLORIDE
     Indication: DIABETES MELLITUS
     Dosage: UNK, PRN
     Route: 065
  18. HYDRALAZINE [Concomitant]
     Active Substance: HYDRALAZINE HYDROCHLORIDE
     Dosage: 25 MG, BID
     Route: 048
     Dates: start: 20140912, end: 20140913
  19. HYDRALAZINE [Concomitant]
     Active Substance: HYDRALAZINE HYDROCHLORIDE
     Dosage: 25 MG, BID
     Route: 048
     Dates: start: 20140925, end: 20140927
  20. PANTOPRAZOLE [Concomitant]
     Active Substance: PANTOPRAZOLE SODIUM
     Indication: PRODUCT USED FOR UNKNOWN INDICATION
     Dosage: 40 MG, QD
     Route: 042
     Dates: start: 20140913, end: 20140927
  21. SULFAMETHOXAZOLE AND TRIMETHOPRIM [Concomitant]
     Active Substance: SULFAMETHOXAZOLE\TRIMETHOPRIM
     Indication: PRODUCT USED FOR UNKNOWN INDICATION
     Dosage: 160 MG, QD
     Route: 048
     Dates: start: 20140913, end: 20140915
  22. GLUCAGON. [Concomitant]
     Active Substance: GLUCAGON
     Dosage: 1 MG, PRN
     Route: 030
     Dates: start: 20140913, end: 20140927
  23. INSULIN REGULAR                    /01223201/ [Concomitant]
     Indication: BLOOD GLUCOSE INCREASED
     Dosage: 2-4 UNITS, SINGLE PRN
     Route: 042
     Dates: start: 20140913, end: 20140913
  24. INSULIN REGULAR                    /01223201/ [Concomitant]
     Dosage: 5-22 ML/HR, CONTINUOUS
     Route: 042
     Dates: start: 20140913, end: 20140927
  25. INSULIN REGULAR                    /01223201/ [Concomitant]
     Dosage: 2 DF, (PER HOUR)
     Route: 042
  26. NOVOLOG [Concomitant]
     Active Substance: INSULIN ASPART
     Dosage: 1-6 UNITS, PRN
     Route: 058
     Dates: start: 20140913, end: 20140913
  27. LOPRESSOR [Concomitant]
     Active Substance: METOPROLOL TARTRATE
     Dosage: 25 MG, BID
     Route: 048
     Dates: start: 20140916, end: 20140918
  28. LOPRESSOR [Concomitant]
     Active Substance: METOPROLOL TARTRATE
     Dosage: 75 MG, BID
     Route: 048
     Dates: start: 20140920, end: 20140921
  29. MORPHINE [Concomitant]
     Active Substance: MORPHINE
     Indication: PRODUCT USED FOR UNKNOWN INDICATION
     Dosage: 1-20 ML/HR, CONTINUOUS
     Route: 042
     Dates: start: 20140926, end: 20140927
  30. MORPHINE [Concomitant]
     Active Substance: MORPHINE
     Dosage: 2 MG/ML, SINGLE
     Route: 042
     Dates: start: 20140913, end: 20140913
  31. ZOFRAN                             /00955301/ [Concomitant]
     Active Substance: ONDANSETRON HYDROCHLORIDE
     Indication: VOMITING
  32. ECONAZOLE NITRATE. [Concomitant]
     Active Substance: ECONAZOLE NITRATE
     Indication: PRODUCT USED FOR UNKNOWN INDICATION
     Dosage: UNK
     Route: 061
  33. AMOXICILLIN. [Concomitant]
     Active Substance: AMOXICILLIN
     Dosage: 500 MG, Q12H
     Route: 048
     Dates: start: 20140915, end: 20140927
  34. HYDRALAZINE [Concomitant]
     Active Substance: HYDRALAZINE HYDROCHLORIDE
     Dosage: 20 MG, SINGLE
     Route: 042
     Dates: start: 20140915, end: 20140915
  35. SULFAMETHOXAZOLE AND TRIMETHOPRIM [Concomitant]
     Active Substance: SULFAMETHOXAZOLE\TRIMETHOPRIM
     Dosage: 160 MG, QD
     Route: 048
     Dates: start: 20140917, end: 20140927
  36. ALBUTEROL SULFATE. [Concomitant]
     Active Substance: ALBUTEROL SULFATE
     Indication: PRODUCT USED FOR UNKNOWN INDICATION
     Dosage: 2.5 MG, PRN Q4H
     Route: 065
     Dates: start: 20140913, end: 20140927
  37. ACETAMINOPHEN. [Concomitant]
     Active Substance: ACETAMINOPHEN
     Indication: PRODUCT USED FOR UNKNOWN INDICATION
     Dosage: 650 MG, SINGLE
     Route: 048
     Dates: start: 20140912, end: 20140912
  38. DIPHENHYDRAMINE [Concomitant]
     Active Substance: DIPHENHYDRAMINE
     Dosage: 50 MG, QD
     Route: 042
     Dates: start: 20140914, end: 20140914
  39. DEXTROSE. [Concomitant]
     Active Substance: DEXTROSE
     Dosage: 25-60 ML, PRN
     Route: 042
     Dates: start: 20140913, end: 20140913
  40. NOVOLOG [Concomitant]
     Active Substance: INSULIN ASPART
     Dosage: 2-12 UNITS, PRN
     Route: 058
     Dates: start: 20140913, end: 20140913
  41. NOVOLOG [Concomitant]
     Active Substance: INSULIN ASPART
     Dosage: 16-22 UNITS, START OF EVERY MEAL
     Route: 030
  42. LOPRESSOR [Concomitant]
     Active Substance: METOPROLOL TARTRATE
     Indication: PRODUCT USED FOR UNKNOWN INDICATION
     Dosage: 200 MG, BID
     Route: 048
     Dates: start: 20140912, end: 20140913
  43. NIFEDIPINE. [Concomitant]
     Active Substance: NIFEDIPINE
     Indication: PRODUCT USED FOR UNKNOWN INDICATION
     Dosage: 90 MG, QD
     Route: 048
     Dates: start: 20140913, end: 20140913
  44. PRILOSEC [Concomitant]
     Active Substance: OMEPRAZOLE MAGNESIUM
     Indication: PRODUCT USED FOR UNKNOWN INDICATION
     Dosage: 20 MG, QD
     Route: 048
     Dates: start: 20140913, end: 20140913
  45. SODIUM CHLORIDE. [Concomitant]
     Active Substance: SODIUM CHLORIDE
     Dosage: 42 ML/HR, CONT
     Route: 042
     Dates: start: 20140912, end: 20140914
  46. VALCYTE [Concomitant]
     Active Substance: VALGANCICLOVIR HYDROCHLORIDE
     Dosage: 450 MG, QOD
     Route: 050
     Dates: start: 20140915, end: 20140916
  47. MYCOPHENOLATE MOFETIL. [Concomitant]
     Active Substance: MYCOPHENOLATE MOFETIL
     Indication: IMMUNOSUPPRESSANT DRUG THERAPY
     Dosage: 1000 MG, Q12H
     Route: 048
     Dates: start: 20140913, end: 20140913
  48. PROGRAF [Concomitant]
     Active Substance: TACROLIMUS\TACROLIMUS ANHYDROUS
     Dosage: 3 MG, BID
     Route: 050
     Dates: start: 20140917
  49. AMOXICILLIN. [Concomitant]
     Active Substance: AMOXICILLIN
     Indication: PRODUCT USED FOR UNKNOWN INDICATION
     Dosage: 500 MG, BID
     Route: 048
  50. AMOXICILLIN. [Concomitant]
     Active Substance: AMOXICILLIN
     Dosage: 500 MG, Q8H
     Route: 048
     Dates: start: 20140913, end: 20140915
  51. ASPIRIN. [Concomitant]
     Active Substance: ASPIRIN
     Indication: PRODUCT USED FOR UNKNOWN INDICATION
     Dosage: 81 MG, QD (DAILY WITH BREAKFAST)
     Route: 050
     Dates: start: 20140914, end: 20140927
  52. HYDRALAZINE [Concomitant]
     Active Substance: HYDRALAZINE HYDROCHLORIDE
     Indication: HYPERTENSION
     Dosage: 10 MG, UNK (X 2)
  53. BACITRACIN. [Concomitant]
     Active Substance: BACITRACIN
     Indication: PRODUCT USED FOR UNKNOWN INDICATION
     Dosage: 50000 UT, PRN
     Route: 065
     Dates: start: 20140912, end: 20140912
  54. SENSIPAR [Concomitant]
     Active Substance: CINACALCET HYDROCHLORIDE
     Indication: PRODUCT USED FOR UNKNOWN INDICATION
     Dosage: 60 MG, QD NIGHTLY
     Route: 048
     Dates: start: 20140912, end: 20140913
  55. DEXTROSE. [Concomitant]
     Active Substance: DEXTROSE
     Dosage: 50 ML, SINGLE
     Route: 042
     Dates: start: 20140913, end: 20140913
  56. NOVOLOG [Concomitant]
     Active Substance: INSULIN ASPART
     Indication: BLOOD GLUCOSE INCREASED
     Dosage: 1-6 UNITS, PRN
     Route: 058
     Dates: start: 20140912, end: 20140912
  57. KEPPRA [Concomitant]
     Active Substance: LEVETIRACETAM
     Indication: PRODUCT USED FOR UNKNOWN INDICATION
     Dosage: 1000 MG, Q12H
     Route: 042
     Dates: start: 20140914, end: 20140917
  58. MENVEO [Concomitant]
     Active Substance: NEISSERIA MENINGITIDIS GROUP A CAPSULAR OLIGOSACCHARIDE DIPHTHERIA CRM197 PROTEIN CONJUGATE ANTIGEN\NEISSERIA MENINGITIDIS GROUP C CAPSULAR OLIGOSACCHARIDE DIPHTHERIA CRM197 PROTEIN CONJUGATE ANTIGEN\NEISSERIA MENINGITIDIS GROUP W-135 CAPSULAR OLIGOSACCHARIDE DIPHTHERIA CRM197 PROTEIN CONJUGATE ANTI
     Indication: IMMUNISATION
     Dosage: 0.5 ML, SINGLE
     Route: 030
     Dates: start: 20140912, end: 20140912
  59. SOLU-MEDROL [Concomitant]
     Active Substance: METHYLPREDNISOLONE SODIUM SUCCINATE
     Indication: PRODUCT USED FOR UNKNOWN INDICATION
     Dosage: 250 MG, SINGLE
     Route: 042
     Dates: start: 20140912, end: 20140912
  60. MORPHINE [Concomitant]
     Active Substance: MORPHINE
     Dosage: 2 MG/ML, UNK
     Route: 030
     Dates: start: 20140913, end: 20140914
  61. NIFEDIPINE. [Concomitant]
     Active Substance: NIFEDIPINE
     Dosage: 90 MG, BID
     Route: 048
  62. ZOFRAN                             /00955301/ [Concomitant]
     Active Substance: ONDANSETRON HYDROCHLORIDE
     Indication: NAUSEA
     Dosage: 4 MG, SINGLE, PRN
     Route: 042
     Dates: start: 20140912, end: 20140912
  63. PETROLATUM WHITE [Concomitant]
     Indication: PRODUCT USED FOR UNKNOWN INDICATION
     Dosage: UNK, QID
     Route: 061
     Dates: start: 20140913, end: 20140927
  64. CINACALCET [Concomitant]
     Active Substance: CINACALCET
     Indication: PRODUCT USED FOR UNKNOWN INDICATION
     Dosage: 60 MG, QD (NIGHT)
     Route: 048
  65. INSULIN GLARGINE [Concomitant]
     Active Substance: INSULIN GLARGINE
     Indication: HYPERTENSION
  66. MYCOPHENOLATE MOFETIL. [Concomitant]
     Active Substance: MYCOPHENOLATE MOFETIL
     Dosage: 1000 MG, SINGLE
     Route: 048
     Dates: start: 20140912, end: 20140912
  67. MYCOPHENOLATE MOFETIL. [Concomitant]
     Active Substance: MYCOPHENOLATE MOFETIL
     Dosage: 1000 MG, BID (EVERY 12 HOURS)
     Route: 050
     Dates: start: 20140913, end: 20140927
  68. ASPIRIN. [Concomitant]
     Active Substance: ASPIRIN
     Dosage: 81 MG, QD
     Route: 048
     Dates: start: 20140913, end: 20140913
  69. CHLORHEXIDINE [Concomitant]
     Active Substance: CHLORHEXIDINE
     Indication: PRODUCT USED FOR UNKNOWN INDICATION
     Dosage: 15 ML, BID
     Route: 050
     Dates: start: 20140913, end: 20140927
  70. HEPARIN [Concomitant]
     Active Substance: HEPARIN SODIUM
     Dosage: 5000 UT, Q8H
     Route: 058
     Dates: start: 20140922, end: 20140927
  71. NYSTATIN. [Concomitant]
     Active Substance: NYSTATIN
     Dosage: 5 ML, BID
     Route: 048
     Dates: start: 20140915, end: 20140915
  72. VALGANCICLOVIR [Concomitant]
     Active Substance: VALGANCICLOVIR
     Indication: PRODUCT USED FOR UNKNOWN INDICATION
     Dosage: 450 MG, QOD
     Route: 050
  73. ALBUTEROL SULFATE. [Concomitant]
     Active Substance: ALBUTEROL SULFATE
     Dosage: 2.5 MG, Q4H
     Route: 065
     Dates: start: 20140913, end: 20140913
  74. WHITE PETROLATUM [Concomitant]
     Active Substance: PETROLATUM
     Indication: PRODUCT USED FOR UNKNOWN INDICATION
     Dosage: UNK, PRN
     Route: 065
  75. ANCEF [Concomitant]
     Active Substance: CEFAZOLIN SODIUM
     Indication: PRODUCT USED FOR UNKNOWN INDICATION
     Dosage: 1 MG, SINGLE
     Route: 042
     Dates: start: 20140913, end: 20140913
  76. DEXTROSE. [Concomitant]
     Active Substance: DEXTROSE
     Dosage: 1 TUBE, PRN
     Route: 048
     Dates: start: 20140912, end: 20140912
  77. INTROPIN [Concomitant]
     Active Substance: DOPAMINE HYDROCHLORIDE
     Indication: PRODUCT USED FOR UNKNOWN INDICATION
     Dosage: 400 MG/260 ML INFUSION
     Route: 065
     Dates: start: 20140913, end: 20140914
  78. FOLVITE                            /00024201/ [Concomitant]
     Indication: PRODUCT USED FOR UNKNOWN INDICATION
     Dosage: 1 MG, QD
     Route: 048
     Dates: start: 20140919, end: 20140927
  79. SOLU-MEDROL [Concomitant]
     Active Substance: METHYLPREDNISOLONE SODIUM SUCCINATE
     Dosage: 250 MG, SINGLE
     Route: 042
     Dates: start: 20140914, end: 20140918
  80. SOLU-MEDROL [Concomitant]
     Active Substance: METHYLPREDNISOLONE SODIUM SUCCINATE
     Dosage: 250 MG, SINGLE
     Route: 042
     Dates: start: 20140914, end: 20140914
  81. LOPRESSOR [Concomitant]
     Active Substance: METOPROLOL TARTRATE
     Dosage: 100 MG, BID
     Route: 048
     Dates: start: 20140921, end: 20140927
  82. VERSED [Concomitant]
     Active Substance: MIDAZOLAM HYDROCHLORIDE
     Indication: PRODUCT USED FOR UNKNOWN INDICATION
     Dosage: 1-20 ML/HR, CONTINUOUS
     Route: 042
     Dates: start: 20140927, end: 20140928
  83. RENVELA [Concomitant]
     Active Substance: SEVELAMER CARBONATE
     Indication: PRODUCT USED FOR UNKNOWN INDICATION
     Dosage: 2400 MG, TID
     Route: 048
     Dates: start: 20140912, end: 20140913
  84. SODIUM BICARBONATE. [Concomitant]
     Active Substance: SODIUM BICARBONATE
     Dosage: 100 ML, CONTINUOUS
     Route: 042
     Dates: start: 20140914, end: 20140914
  85. VALCYTE [Concomitant]
     Active Substance: VALGANCICLOVIR HYDROCHLORIDE
     Indication: PRODUCT USED FOR UNKNOWN INDICATION
     Dosage: 450 MG, QOD
     Route: 048
     Dates: start: 20140913, end: 20140913
  86. ECULIZUMAB [Suspect]
     Active Substance: ECULIZUMAB
     Indication: COMPLICATIONS OF TRANSPLANTED KIDNEY
     Dosage: UNK
     Route: 042
     Dates: start: 20140912, end: 20140912
  87. HEPARIN [Concomitant]
     Active Substance: HEPARIN SODIUM
     Indication: PRODUCT USED FOR UNKNOWN INDICATION
     Dosage: 5000 UT, PRN
     Route: 058
     Dates: start: 20140912, end: 20140912
  88. HEPARIN [Concomitant]
     Active Substance: HEPARIN SODIUM
     Dosage: 5000 UT, Q8H
     Route: 058
     Dates: start: 20140912, end: 20140912
  89. HYDRALAZINE [Concomitant]
     Active Substance: HYDRALAZINE HYDROCHLORIDE
     Dosage: 20 MG, SINGLE
     Route: 042
     Dates: start: 20140916, end: 20140916
  90. HYDRALAZINE [Concomitant]
     Active Substance: HYDRALAZINE HYDROCHLORIDE
     Dosage: 10 MG, Q6H
     Route: 042
     Dates: start: 20140916, end: 20140927
  91. HYDRALAZINE [Concomitant]
     Active Substance: HYDRALAZINE HYDROCHLORIDE
     Dosage: 15 MG, Q4H
     Route: 042
     Dates: start: 20140916, end: 20140916
  92. HYDRALAZINE [Concomitant]
     Active Substance: HYDRALAZINE HYDROCHLORIDE
     Dosage: 10 MG, SINGLE
     Route: 042
     Dates: start: 20140918, end: 20140918
  93. NYSTATIN. [Concomitant]
     Active Substance: NYSTATIN
     Indication: PRODUCT USED FOR UNKNOWN INDICATION
     Dosage: 5 ML, QID
     Route: 048
     Dates: start: 20140915, end: 20140927
  94. DEXTROSE WATER [Concomitant]
     Dosage: 26-50 ML, PRN
     Route: 042
     Dates: start: 20140912, end: 20140912
  95. INSULIN REGULAR                    /01223201/ [Concomitant]
     Dosage: 2-8 UNITS, PRN
     Route: 042
     Dates: start: 20140913, end: 20140927
  96. ARANESP [Concomitant]
     Active Substance: DARBEPOETIN ALFA
     Indication: PRODUCT USED FOR UNKNOWN INDICATION
     Dosage: 40 MCG, SINGLE
     Dates: start: 20140920, end: 20140920
  97. DEXTROSE. [Concomitant]
     Active Substance: DEXTROSE
     Indication: BLOOD GLUCOSE DECREASED
     Dosage: 1 TUBE, PRN
     Route: 048
     Dates: start: 20140913, end: 20140927
  98. LEVOPHED [Concomitant]
     Active Substance: NOREPINEPHRINE BITARTRATE
     Indication: PRODUCT USED FOR UNKNOWN INDICATION
     Dosage: 16 MG/250 ML
     Route: 065
     Dates: start: 20140913, end: 20140914
  99. ROXICODONE [Concomitant]
     Active Substance: OXYCODONE HYDROCHLORIDE
     Indication: PAIN
     Dosage: 5 MG, Q6H PRN
     Route: 048
     Dates: start: 20140913, end: 20140913
  100. SODIUM CHLORIDE. [Concomitant]
     Active Substance: SODIUM CHLORIDE
     Dosage: 10 ML, SINGLE
     Route: 050
     Dates: start: 20140916, end: 20140916
  101. THROMBIN [Concomitant]
     Active Substance: THROMBIN
     Indication: PRODUCT USED FOR UNKNOWN INDICATION
     Dosage: UNK, PRN
     Route: 061
     Dates: start: 20140912, end: 20140912
  102. DOCUSATE SODIUM. [Concomitant]
     Active Substance: DOCUSATE SODIUM
     Indication: PRODUCT USED FOR UNKNOWN INDICATION
     Dosage: 50 MG, BID
     Route: 048
  103. INSULIN GLARGINE [Concomitant]
     Active Substance: INSULIN GLARGINE
     Indication: DIABETES MELLITUS
     Dosage: 3 ML, UNK
     Route: 030
  104. ECULIZUMAB [Suspect]
     Active Substance: ECULIZUMAB
     Dosage: 900 MG, UNK
     Route: 042
     Dates: start: 20140913, end: 20140913
  105. PROGRAF [Concomitant]
     Active Substance: TACROLIMUS\TACROLIMUS ANHYDROUS
     Indication: IMMUNOSUPPRESSANT DRUG THERAPY
     Dosage: 2 MG, BID (BID)
     Route: 050
  106. HEPARIN [Concomitant]
     Active Substance: HEPARIN SODIUM
     Dosage: 5000 UT, Q8H
     Route: 058
     Dates: start: 20140913, end: 20140913
  107. HYDRALAZINE [Concomitant]
     Active Substance: HYDRALAZINE HYDROCHLORIDE
     Dosage: 15 MG, Q6H
     Route: 042
     Dates: start: 20140916, end: 20140916
  108. GLUCAGON. [Concomitant]
     Active Substance: GLUCAGON
     Indication: BLOOD GLUCOSE DECREASED
     Dosage: 1 MG, PRN
     Route: 030
     Dates: start: 20140912, end: 20140912
  109. GLUCAGON. [Concomitant]
     Active Substance: GLUCAGON
     Dosage: 1 MG, PRN
     Route: 030
     Dates: start: 20140913, end: 20140913
  110. INSULIN REGULAR                    /01223201/ [Concomitant]
     Dosage: 3.75 DF, (PER HOUR)
     Route: 042
     Dates: start: 20140917
  111. ACETAMINOPHEN. [Concomitant]
     Active Substance: ACETAMINOPHEN
     Dosage: 50 MG, QD
     Route: 048
     Dates: start: 20140914, end: 20140914
  112. DULCOLAX (BISACODYL) [Concomitant]
     Active Substance: BISACODYL
     Dosage: 50 MG, BID
     Route: 048
     Dates: start: 20140912, end: 20140913
  113. ANCEF [Concomitant]
     Active Substance: CEFAZOLIN SODIUM
     Dosage: 1 MG, SINGLE
     Route: 042
     Dates: start: 20140912, end: 20140912
  114. NOVOLOG [Concomitant]
     Active Substance: INSULIN ASPART
     Dosage: 16-20 UNITS, TID
     Route: 058
     Dates: start: 20140913, end: 20140913
  115. KEPPRA [Concomitant]
     Active Substance: LEVETIRACETAM
     Dosage: 2000 MG, Q12H
     Route: 042
     Dates: start: 20140914, end: 20140914
  116. NITROPRUSSIDE [Concomitant]
     Active Substance: NITROPRUSSIDE
     Indication: PRODUCT USED FOR UNKNOWN INDICATION
     Dosage: 25 MG/ML, PRN
     Route: 030
     Dates: start: 20140912, end: 20140912
  117. SODIUM CHLORIDE. [Concomitant]
     Active Substance: SODIUM CHLORIDE
     Dosage: 25 ML/HR, CONT
     Route: 042
     Dates: start: 20140912, end: 20140913
  118. SODIUM CHLORIDE. [Concomitant]
     Active Substance: SODIUM CHLORIDE
     Dosage: 500 ML, SINGLE
     Route: 042
     Dates: start: 20140913, end: 20140913
  119. TACROLIMUS. [Concomitant]
     Active Substance: TACROLIMUS
     Indication: PRODUCT USED FOR UNKNOWN INDICATION
     Dosage: 2 MG, Q12H
     Route: 048
     Dates: start: 20140913, end: 20140913
  120. COZAAR [Concomitant]
     Active Substance: LOSARTAN POTASSIUM
     Indication: PRODUCT USED FOR UNKNOWN INDICATION
     Dosage: 100 MG, QD
     Route: 048
  121. METOPROLOL TARTRATE. [Concomitant]
     Active Substance: METOPROLOL TARTRATE
     Indication: ESSENTIAL HYPERTENSION
     Dosage: 100 MG, BID
     Route: 048
  122. THYMOGLOBULIN [Concomitant]
     Active Substance: LAPINE T-LYMPHOCYTE IMMUNE GLOBULIN
     Indication: IMMUNOSUPPRESSANT DRUG THERAPY
     Dosage: 16 MG/KG, QD
     Route: 042
     Dates: start: 20140914, end: 20140916
  123. HYDRALAZINE [Concomitant]
     Active Substance: HYDRALAZINE HYDROCHLORIDE
     Dosage: 15 MG, SINGLE
     Route: 042
     Dates: start: 20140915, end: 20140915
  124. SULFAMETHOXAZOLE AND TRIMETHOPRIM [Concomitant]
     Active Substance: SULFAMETHOXAZOLE\TRIMETHOPRIM
     Dosage: 160 MG, TIW
     Route: 048
     Dates: start: 20140917
  125. DEXTROSE WATER [Concomitant]
     Indication: PRODUCT USED FOR UNKNOWN INDICATION
     Dosage: UNK, PRN
     Route: 065
  126. B-COMPLEX + VITAMIN C [Concomitant]
     Indication: PRODUCT USED FOR UNKNOWN INDICATION
     Dosage: 1 TABLET, QD
     Route: 048
     Dates: start: 20140919, end: 20140927
  127. MYCELEX [Concomitant]
     Active Substance: CLOTRIMAZOLE
     Indication: PRODUCT USED FOR UNKNOWN INDICATION
     Dosage: 10 MG, 6 TIMES DAILY
     Route: 065
     Dates: start: 20140913, end: 20140913
  128. ARANESP [Concomitant]
     Active Substance: DARBEPOETIN ALFA
     Dosage: 40 MCG, QW
     Route: 065
     Dates: start: 20140927, end: 20140927
  129. DILAUDID [Concomitant]
     Active Substance: HYDROMORPHONE HYDROCHLORIDE
     Indication: PAIN
     Dosage: 0.2 MG, Q10MIN
     Route: 042
     Dates: start: 20140912, end: 20140912
  130. LOPRESSOR [Concomitant]
     Active Substance: METOPROLOL TARTRATE
     Dosage: 50 MG, BID
     Route: 048
     Dates: start: 20140918, end: 20140920
  131. SODIUM CHLORIDE. [Concomitant]
     Active Substance: SODIUM CHLORIDE
     Indication: PRODUCT USED FOR UNKNOWN INDICATION
     Dosage: 1-1000 ML/HR, CONT
     Route: 042
     Dates: start: 20140912, end: 20140913
  132. SODIUM CHLORIDE. [Concomitant]
     Active Substance: SODIUM CHLORIDE
     Dosage: 50 ML/HR, CONT
     Route: 042
     Dates: start: 20140915, end: 20140915
  133. TACROLIMUS. [Concomitant]
     Active Substance: TACROLIMUS
     Dosage: 2 MG, Q12H
     Route: 050
     Dates: start: 20140913, end: 20140916
  134. TACROLIMUS. [Concomitant]
     Active Substance: TACROLIMUS
     Dosage: 3 MG, Q12H
     Route: 048
     Dates: start: 20140916, end: 20140927

REACTIONS (1)
  - Ventricular fibrillation [Fatal]

NARRATIVE: CASE EVENT DATE: 20140913
